FAERS Safety Report 4665453-2 (Version None)
Quarter: 2005Q2

REPORT INFORMATION
  Report Type: 
  Country: None (occurrence: None)
  Receive Date: 20050518
  Receipt Date: 20050518
  Transmission Date: 20051028
  Serious: Yes (Hospitalization)
  Sender: FDA-Public Use
  Company Number: None

PATIENT
  Sex: Male
  Weight: 92 kg

DRUGS (10)
  1. FLUDARABINE [Suspect]
     Indication: MYELOID LEUKAEMIA
     Dosage: 69MG  , DAILY, IV
     Route: 042
     Dates: start: 20041019, end: 20041023
  2. FLUDARABINE [Suspect]
     Indication: STEM CELL TRANSPLANT
     Dosage: 69MG  , DAILY, IV
     Route: 042
     Dates: start: 20041019, end: 20041023
  3. MELPHALAN [Suspect]
     Indication: STEM CELL TRANSPLANT
     Dosage: 320MGONCE,
     Dates: start: 20041024
  4. CAMPATH [Suspect]
     Dosage: 20MG Q, D I
     Dates: start: 20041019, end: 20041024
  5. PREDNISONE TAB [Concomitant]
  6. VORICONAZOLE [Concomitant]
  7. PREVACID [Concomitant]
  8. LOVENOX [Concomitant]
  9. ATENOLOL [Concomitant]
  10. VALTREX [Concomitant]

REACTIONS (1)
  - CENTRAL LINE INFECTION [None]
